FAERS Safety Report 7819369-0 (Version None)
Quarter: 2011Q4

REPORT INFORMATION
  Report Type: 
  Country: None (occurrence: None)
  Receive Date: 20111018
  Receipt Date: 20100825
  Transmission Date: 20120403
  Serious: No
  Sender: FDA-Public Use
  Company Number: US-ASTRAZENECA-2010SE40112

PATIENT
  Age: 50 Year
  Sex: Female
  Weight: 89.4 kg

DRUGS (6)
  1. SYMBICORT [Suspect]
     Indication: SARCOIDOSIS
     Dosage: 160/4.5 TWO PUFFS BID
     Route: 055
     Dates: start: 20050101
  2. PROAIR HFA [Concomitant]
     Indication: SARCOIDOSIS
  3. SYMBICORT [Suspect]
     Indication: ASTHMA
     Dosage: 160/4.5 TWO PUFFS BID
     Route: 055
     Dates: start: 20050101
  4. PROAIR HFA [Concomitant]
     Indication: ASTHMA
  5. HIGH CHOLESTEROL MEDICATION [Concomitant]
     Indication: BLOOD CHOLESTEROL INCREASED
  6. HIGH BLOOD PRESSURE MEDICATION [Concomitant]
     Indication: HYPERTENSION

REACTIONS (2)
  - INCORRECT DRUG ADMINISTRATION DURATION [None]
  - NERVOUSNESS [None]
